FAERS Safety Report 11008256 (Version 2)
Quarter: 2015Q3

REPORT INFORMATION
  Report Type: Report from Study
  Country: US (occurrence: US)
  Receive Date: 20150410
  Receipt Date: 20150821
  Transmission Date: 20151125
  Serious: Yes (Other)
  Sender: FDA-Public Use
  Company Number: US-AMGEN-USASL2015034558

PATIENT
  Age: 54 Year
  Sex: Male

DRUGS (3)
  1. ENBREL [Suspect]
     Active Substance: ETANERCEPT
     Dosage: UNK UNK, QWK
     Route: 058
     Dates: end: 2015
  2. ENBREL [Suspect]
     Active Substance: ETANERCEPT
     Indication: PSORIASIS
     Dosage: 50 MG, QWK
     Route: 058
     Dates: end: 2015
  3. ENBREL [Suspect]
     Active Substance: ETANERCEPT
     Dosage: UNK UNK, 2 TIMES/WK
     Route: 058
     Dates: start: 2014

REACTIONS (14)
  - Headache [Recovered/Resolved]
  - Malaise [Recovered/Resolved]
  - Pruritus [Unknown]
  - Inappropriate schedule of drug administration [Unknown]
  - Wound infection [Recovered/Resolved]
  - Dry skin [Unknown]
  - Eyelid disorder [Recovered/Resolved]
  - Urticaria [Recovered/Resolved]
  - Scratch [Unknown]
  - Fear [Recovered/Resolved]
  - Blood urine present [Unknown]
  - Paranoid personality disorder [Unknown]
  - Stress [Recovered/Resolved]
  - Erythema [Unknown]

NARRATIVE: CASE EVENT DATE: 2012
